FAERS Safety Report 4896645-5 (Version None)
Quarter: 2006Q1

REPORT INFORMATION
  Report Type: 
  Country: None (occurrence: None)
  Receive Date: 20060131
  Receipt Date: 20060119
  Transmission Date: 20060701
  Serious: Yes (Other)
  Sender: FDA-Public Use
  Company Number: US-ROCHE-432938

PATIENT
  Sex: Female
  Weight: 57.2 kg

DRUGS (13)
  1. BONIVA [Suspect]
     Indication: OSTEOPOROSIS
     Route: 048
     Dates: start: 20051210, end: 20051210
  2. LOTENSIN [Concomitant]
  3. METFORMIN [Concomitant]
  4. ACTOS [Concomitant]
  5. HYDROCHLOROTHIAZIDE [Concomitant]
  6. METOPROLOL [Concomitant]
  7. GLYBURIDE [Concomitant]
  8. HUMULIN N [Concomitant]
  9. TRAZODONE [Concomitant]
     Dosage: DRUG GIVEN AS 'TRAZADONE'
  10. ZOLOFT [Concomitant]
  11. HORMONE THERAPY [Concomitant]
     Dosage: HORMONE PATCH
  12. SULAR [Concomitant]
  13. ALLEGRA [Concomitant]

REACTIONS (4)
  - ARTHRALGIA [None]
  - OEDEMA PERIPHERAL [None]
  - PAIN IN EXTREMITY [None]
  - SKIN DISCOLOURATION [None]
